FAERS Safety Report 4577900-5 (Version None)
Quarter: 2005Q1

REPORT INFORMATION
  Report Type: 
  Country: None (occurrence: None)
  Receive Date: 20050209
  Receipt Date: 20050126
  Transmission Date: 20050727
  Serious: Yes (Death, Hospitalization)
  Sender: FDA-Public Use
  Company Number: JP_040804309

PATIENT
  Age: 61 Year
  Sex: Male
  Weight: 61 kg

DRUGS (9)
  1. GEMZAR [Suspect]
     Indication: PANCREATIC CARCINOMA
     Dosage: 1400 MG OTHER
     Dates: start: 20040716, end: 20041026
  2. NASEA (RAMOSETRON HYDROCHLORIDE) [Concomitant]
  3. OMEPRAL (OMEPRZOLE) [Concomitant]
  4. PRIMPERAN ELIXIR [Concomitant]
  5. URSODIOL [Concomitant]
  6. BLOPRESS (CANDESARTAN CILEXETIL) [Concomitant]
  7. CONIEL (BENIDIPINE HYDROCHLORIDE) [Concomitant]
  8. OXYCONTIN [Concomitant]
  9. NAUZELIN (DOMEPERIDONE) [Concomitant]

REACTIONS (5)
  - ASCITES [None]
  - HEPATIC FAILURE [None]
  - HEPATITIS B VIRUS [None]
  - HICCUPS [None]
  - JAUNDICE CHOLESTATIC [None]
